FAERS Safety Report 4431380-9 (Version None)
Quarter: 2004Q3

REPORT INFORMATION
  Report Type: 
  Country: None (occurrence: None)
  Receive Date: 20040824
  Receipt Date: 20040813
  Transmission Date: 20050211
  Serious: Yes (Other)
  Sender: FDA-Public Use
  Company Number: CH-ROCHE-377623

PATIENT
  Age: 17 Year
  Sex: Female

DRUGS (1)
  1. ROACCUTAN [Suspect]
     Indication: ACNE
     Route: 048
     Dates: start: 20031215, end: 20040725

REACTIONS (4)
  - DECREASED APPETITE [None]
  - DEPRESSION [None]
  - PANIC ATTACK [None]
  - SOCIAL PHOBIA [None]
